FAERS Safety Report 25496756 (Version 1)
Quarter: 2025Q3

REPORT INFORMATION
  Report Type: Report from Study
  Country: CA (occurrence: CA)
  Receive Date: 20250701
  Receipt Date: 20250701
  Transmission Date: 20251021
  Serious: Yes (Hospitalization, Other)
  Sender: ABBVIE
  Company Number: CA-ABBVIE-6345322

PATIENT
  Age: 18 Year
  Sex: Male

DRUGS (1)
  1. SKYRIZI [Suspect]
     Active Substance: RISANKIZUMAB-RZAA
     Indication: Crohn^s disease
     Route: 042
     Dates: start: 20250623, end: 20250623

REACTIONS (5)
  - Seizure [Recovered/Resolved]
  - Presyncope [Unknown]
  - Hyperhidrosis [Unknown]
  - Mydriasis [Unknown]
  - Pallor [Unknown]

NARRATIVE: CASE EVENT DATE: 20250623
